FAERS Safety Report 10098884 (Version 1)
Quarter: 2014Q2

REPORT INFORMATION
  Report Type: Report from Study
  Country: BR (occurrence: BR)
  Receive Date: 20140423
  Receipt Date: 20140423
  Transmission Date: 20141212
  Serious: Yes (Other)
  Sender: FDA-Public Use
  Company Number: ALCN2014BR002474

PATIENT
  Age: 55 Year
  Sex: Male
  Weight: 105 kg

DRUGS (6)
  1. DUOTRAV [BAC] [Suspect]
     Indication: GLAUCOMA
     Dosage: 1 GTT, BID
     Route: 047
     Dates: start: 2007
  2. CENTRUM [Concomitant]
     Indication: VITAMIN SUPPLEMENTATION
     Dosage: 1 TABLET, QD
     Route: 048
     Dates: start: 20140321, end: 20140415
  3. FLUOXETIN [Concomitant]
     Indication: ANXIETY
     Dosage: 1 TABLET, QD
     Route: 048
     Dates: start: 20140321, end: 20140415
  4. INSULIN [Concomitant]
     Indication: DIABETES MELLITUS
     Dosage: 1 UNK, QD
     Route: 058
  5. ENALAPRIL [Concomitant]
     Indication: HYPERTENSION
     Dosage: 1 UNK, TID
     Route: 048
     Dates: start: 2006
  6. GLUTA [Concomitant]
     Indication: OPTIC NERVE DISORDER
     Dosage: 1 DF, BID
     Dates: start: 201403

REACTIONS (4)
  - Malaise [Unknown]
  - Vision blurred [Unknown]
  - Visual acuity reduced [Not Recovered/Not Resolved]
  - Intraocular pressure increased [Recovered/Resolved]
